FAERS Safety Report 9697769 (Version 2)
Quarter: 2014Q1

REPORT INFORMATION
  Report Type: Spontaneous
  Country: US (occurrence: US)
  Receive Date: 20131120
  Receipt Date: 20140203
  Transmission Date: 20141002
  Serious: No
  Sender: FDA-Public Use
  Company Number: US-PFIZER INC-2013327640

PATIENT
  Sex: Male

DRUGS (2)
  1. GLIPIZIDE XL [Suspect]
     Indication: HYPERGLYCAEMIA
     Dosage: 5 MG, 3X/DAY
     Route: 048
     Dates: start: 2012
  2. GLIPIZIDE XL [Suspect]
     Indication: TYPE 2 DIABETES MELLITUS

REACTIONS (2)
  - Drug ineffective [Unknown]
  - Product quality issue [Unknown]
